FAERS Safety Report 14447395 (Version 1)
Quarter: 2018Q1

REPORT INFORMATION
  Report Type: Spontaneous
  Country: FI (occurrence: FI)
  Receive Date: 20180126
  Receipt Date: 20180126
  Transmission Date: 20180509
  Serious: Yes (Other)
  Sender: FDA-Public Use
  Company Number: FI-BAYER-2018-017109

PATIENT
  Sex: Female

DRUGS (3)
  1. THYROXIN [Suspect]
     Active Substance: LEVOTHYROXINE
  2. MIRENA [Suspect]
     Active Substance: LEVONORGESTREL
  3. MIRENA [Suspect]
     Active Substance: LEVONORGESTREL
     Dosage: 20 MCG/24HR, CONT
     Route: 015

REACTIONS (8)
  - Genital haemorrhage [None]
  - Pelvic inflammatory disease [None]
  - Dysuria [None]
  - Menorrhagia [None]
  - Arthralgia [None]
  - Pyrexia [None]
  - Abdominal pain lower [None]
  - Gonorrhoea [None]
